FAERS Safety Report 21750635 (Version 4)
Quarter: 2023Q1

REPORT INFORMATION
  Report Type: Report from Study
  Country: CA (occurrence: CA)
  Receive Date: 20221219
  Receipt Date: 20230301
  Transmission Date: 20230418
  Serious: Yes (Hospitalization)
  Sender: FDA-Public Use
  Company Number: CA-GILEAD-2022-0603272

PATIENT
  Age: 66 Year
  Sex: Female

DRUGS (34)
  1. SACITUZUMAB GOVITECAN-HZIY [Suspect]
     Active Substance: SACITUZUMAB GOVITECAN-HZIY
     Indication: Triple negative breast cancer
     Dosage: 650 MG
     Route: 042
     Dates: start: 20221007
  2. SACITUZUMAB GOVITECAN-HZIY [Suspect]
     Active Substance: SACITUZUMAB GOVITECAN-HZIY
     Dosage: 650 MG
     Route: 042
     Dates: start: 20221007
  3. SACITUZUMAB GOVITECAN-HZIY [Suspect]
     Active Substance: SACITUZUMAB GOVITECAN-HZIY
     Dosage: 650 MG (DAY 1)
     Route: 042
     Dates: start: 20221223
  4. SACITUZUMAB GOVITECAN-HZIY [Suspect]
     Active Substance: SACITUZUMAB GOVITECAN-HZIY
     Dosage: 640 MG
     Route: 042
  5. ACETAMINOPHEN [Concomitant]
     Active Substance: ACETAMINOPHEN
     Dosage: 650 MG PO   (PRE- MEDICATION PRIOR TO TRODELVY)
  6. ACETAMINOPHEN [Concomitant]
     Active Substance: ACETAMINOPHEN
     Dosage: 650 MG PO (PRE- MEDICATION PRIOR TO TRODELVY)
  7. ACETAMINOPHEN [Concomitant]
     Active Substance: ACETAMINOPHEN
     Dosage: 650 MG PO (PRE- MEDICATION PRIOR TO TRODELVY)
  8. ACETAMINOPHEN [Concomitant]
     Active Substance: ACETAMINOPHEN
     Dosage: 650 MG PO (PRE- MEDICATION PRIOR TO TRODELVY)
  9. ACETAMINOPHEN [Concomitant]
     Active Substance: ACETAMINOPHEN
     Dosage: 650 MG PO (PRE-MEDICATION PRIOR TO TRODELVY)
  10. ACETAMINOPHEN [Concomitant]
     Active Substance: ACETAMINOPHEN
     Dosage: 650 MG PO (PRE-MEDICATION PRIOR TO TRODELVY)
  11. ACETAMINOPHEN [Concomitant]
     Active Substance: ACETAMINOPHEN
     Dosage: 650 MG PO (PRE-MEDICATION PRIOR TO TRODELVY)
  12. DEXAMETHASONE [Concomitant]
     Active Substance: DEXAMETHASONE
     Dosage: 10 MG PO   (PRE- MEDICATION PRIOR TO TRODELVY)
  13. DEXAMETHASONE [Concomitant]
     Active Substance: DEXAMETHASONE
     Dosage: 10 MG PO (PRE- MEDICATION PRIOR TO TRODELVY)
  14. DEXAMETHASONE [Concomitant]
     Active Substance: DEXAMETHASONE
     Dosage: 10 MG PO (PRE- MEDICATION PRIOR TO TRODELVY)
  15. DEXAMETHASONE [Concomitant]
     Active Substance: DEXAMETHASONE
     Dosage: 10 MG PO (PRE- MEDICATION PRIOR TO TRODELVY)
  16. ONDANSETRON HYDROCHLORIDE [Concomitant]
     Active Substance: ONDANSETRON HYDROCHLORIDE
     Dosage: 16 MG PO   (PRE- MEDICATION PRIOR TO TRODELVY)
  17. ONDANSETRON HYDROCHLORIDE [Concomitant]
     Active Substance: ONDANSETRON HYDROCHLORIDE
     Dosage: 16 MG PO (PRE- MEDICATION PRIOR TO TRODELVY)
     Dates: end: 202301
  18. ONDANSETRON HYDROCHLORIDE [Concomitant]
     Active Substance: ONDANSETRON HYDROCHLORIDE
     Dosage: 16 MG PO (PRE- MEDICATION PRIOR TO TRODELVY)
  19. ONDANSETRON HYDROCHLORIDE [Concomitant]
     Active Substance: ONDANSETRON HYDROCHLORIDE
     Dosage: 16 MG PO (PRE- MEDICATION PRIOR TO TRODELVY)
  20. DIPHENHYDRAMINE [Concomitant]
     Active Substance: DIPHENHYDRAMINE
     Dosage: 25 MG DAVC   (PRE- MEDICATION PRIOR TO TRODELVY)
  21. DIPHENHYDRAMINE [Concomitant]
     Active Substance: DIPHENHYDRAMINE
     Dosage: 25 MG DAVC (PRE- MEDICATION PRIOR TO TRODELVY)
  22. DIPHENHYDRAMINE [Concomitant]
     Active Substance: DIPHENHYDRAMINE
     Dosage: 25 MG DAVC (PRE- MEDICATION PRIOR TO TRODELVY)
  23. DIPHENHYDRAMINE [Concomitant]
     Active Substance: DIPHENHYDRAMINE
     Dosage: 25 MG DAVC (PRE- MEDICATION PRIOR TO TRODELVY)
  24. DIPHENHYDRAMINE [Concomitant]
     Active Substance: DIPHENHYDRAMINE
     Dosage: 25 MG PIV (PRE-MEDICATION PRIOR TO TRODELVY)
  25. DIPHENHYDRAMINE [Concomitant]
     Active Substance: DIPHENHYDRAMINE
     Dosage: 25 MG PIV (PRE-MEDICATION PRIOR TO TRODELVY)
  26. DIPHENHYDRAMINE [Concomitant]
     Active Substance: DIPHENHYDRAMINE
     Dosage: 25 MG PO (PRE-MEDICATION PRIOR TO TRODELVY)
  27. HEPARIN [Concomitant]
     Active Substance: HEPARIN SODIUM
     Dosage: 20 MG DAVC (PRE- MEDICATION PRIOR TO TRODELVY)
  28. FAMOTIDINE [Concomitant]
     Active Substance: FAMOTIDINE
     Dosage: 20 MG PIV (PRE-MEDICATION PRIOR TO TRODELVY)
  29. FAMOTIDINE [Concomitant]
     Active Substance: FAMOTIDINE
     Dosage: 20 MG PIV (PRE-MEDICATION PRIOR TO TRODELVY)
  30. ADRIAMYCIN [Concomitant]
     Active Substance: DOXORUBICIN HYDROCHLORIDE
  31. TAXOL [Concomitant]
     Active Substance: PACLITAXEL
  32. GEMCITABINE [Concomitant]
     Active Substance: GEMCITABINE
  33. CARBOPLATIN [Concomitant]
     Active Substance: CARBOPLATIN
  34. ONDANSETRON [Concomitant]
     Active Substance: ONDANSETRON
     Dosage: 10 MG PO (PRE-MEDICATION PRIOR TO TRODELVY) STOPPED

REACTIONS (9)
  - SARS-CoV-2 test positive [Unknown]
  - Weight fluctuation [Not Recovered/Not Resolved]
  - Hypotension [Unknown]
  - Device occlusion [Recovered/Resolved]
  - Complication associated with device [Recovered/Resolved]
  - Weight fluctuation [Unknown]
  - Inappropriate schedule of product administration [Unknown]
  - Hypotension [Not Recovered/Not Resolved]
  - Weight fluctuation [Unknown]

NARRATIVE: CASE EVENT DATE: 20221007
